FAERS Safety Report 10108854 (Version 2)
Quarter: 2014Q2

REPORT INFORMATION
  Report Type: Report from Study
  Country: US (occurrence: US)
  Receive Date: 20140425
  Receipt Date: 20140425
  Transmission Date: 20141212
  Serious: Yes (Hospitalization, Other)
  Sender: FDA-Public Use
  Company Number: US-ALEXION PHARMACEUTICALS INC.-A201304970

PATIENT
  Sex: 0

DRUGS (12)
  1. SOLIRIS [Suspect]
     Indication: PAROXYSMAL NOCTURNAL HAEMOGLOBINURIA
     Dosage: 900 MG, Q2W
     Route: 042
     Dates: start: 20090217
  2. ASPIRIN [Concomitant]
     Indication: ANTICOAGULANT THERAPY
     Dosage: 81 MG, QD
     Route: 065
     Dates: start: 20100101
  3. ASCORBIC ACID W/CALCIUM/VITAMIN D NOS [Concomitant]
     Indication: PRODUCT USED FOR UNKNOWN INDICATION
     Dosage: 1000 MG, QD
     Route: 065
  4. SOTALOL [Concomitant]
     Indication: PRODUCT USED FOR UNKNOWN INDICATION
     Dosage: 80 MG, BID
     Route: 065
     Dates: start: 20100101
  5. FOLIC ACID [Concomitant]
     Indication: PRODUCT USED FOR UNKNOWN INDICATION
     Route: 065
  6. ALLEGRA [Concomitant]
     Dosage: UNK, BID
     Dates: start: 20100518
  7. FOSAMAX [Concomitant]
     Dosage: UNK, QW
     Dates: start: 20100518
  8. POTASSIUM [Concomitant]
     Dosage: 10 MEQ, QD
     Dates: start: 20100518
  9. NORCO [Concomitant]
     Dosage: 5/325,Q 4 HRS
  10. TYLENOL                            /00020001/ [Concomitant]
     Dosage: 325UNK
     Dates: start: 20100823
  11. METHYLPREDNISOLONE [Concomitant]
     Dosage: FOR 10 DAYS UNK
     Dates: start: 20101103
  12. CELEBREX [Concomitant]
     Indication: ARTHRITIS
     Dosage: UNK, QD

REACTIONS (3)
  - Cataract operation [Unknown]
  - Biopsy bone marrow [Unknown]
  - Surgery [Unknown]
